FAERS Safety Report 7866452-X (Version None)
Quarter: 2011Q4

REPORT INFORMATION
  Report Type: 
  Country: None (occurrence: None)
  Receive Date: 20111028
  Receipt Date: 20110620
  Transmission Date: 20120403
  Serious: No
  Sender: FDA-Public Use
  Company Number: US-GLAXOSMITHKLINE-A0932033A

PATIENT
  Sex: Female

DRUGS (8)
  1. ALBUTEROL [Concomitant]
  2. ALBUTEROL INHALER [Concomitant]
  3. BENGAY [Concomitant]
  4. NAPROXEN [Concomitant]
  5. ADVAIR DISKUS 100/50 [Suspect]
     Indication: ASTHMA
     Dosage: 1PUFF TWICE PER DAY
     Route: 055
     Dates: start: 20100101, end: 20110613
  6. ANTIBIOTICS [Concomitant]
  7. SINGULAIR [Concomitant]
  8. IBUPROFEN [Concomitant]

REACTIONS (3)
  - ILL-DEFINED DISORDER [None]
  - ARTHRALGIA [None]
  - MUSCULAR WEAKNESS [None]
